FAERS Safety Report 8628717 (Version 2)
Quarter: 2013Q3

REPORT INFORMATION
  Report Type: Spontaneous
  Country: US (occurrence: US)
  Receive Date: 20120621
  Receipt Date: 20130826
  Transmission Date: 20140515
  Serious: Yes (Other)
  Sender: FDA-Public Use
  Company Number: US-ROCHE-791039

PATIENT
  Age: 18 Year
  Sex: Male
  Weight: 52.21 kg

DRUGS (2)
  1. ACCUTANE [Suspect]
     Indication: ACNE
     Route: 065
     Dates: start: 199904, end: 199908
  2. ACCUTANE [Suspect]
     Route: 065
     Dates: start: 20000328, end: 200006

REACTIONS (8)
  - Colitis ulcerative [Unknown]
  - Inflammatory bowel disease [Unknown]
  - Stress [Unknown]
  - Intestinal obstruction [Unknown]
  - Depression [Unknown]
  - Irritable bowel syndrome [Unknown]
  - Lip dry [Unknown]
  - Dry skin [Unknown]
